FAERS Safety Report 12950172 (Version 2)
Quarter: 2017Q1

REPORT INFORMATION
  Report Type: Spontaneous
  Country: US (occurrence: US)
  Receive Date: 20161117
  Receipt Date: 20170321
  Transmission Date: 20170428
  Serious: Yes (Hospitalization, Other)
  Sender: FDA-Public Use
  Company Number: US-WEST-WARD PHARMACEUTICALS CORP.-US-H14001-16-02464

PATIENT
  Age: 37 Year
  Sex: Male

DRUGS (3)
  1. MORPHINE SULFATE. [Suspect]
     Active Substance: MORPHINE SULFATE
     Indication: BACK PAIN
     Dosage: INTRAVENOUS INJECTION OF CRUSHED MORPHINE TABLET
     Route: 042
  2. HEROIN [Concomitant]
     Active Substance: DIACETYLMORPHINE
     Indication: PRODUCT USED FOR UNKNOWN INDICATION
     Dosage: INTRAVENOUS INJECTION OF CRUSHED MORPHINE TABLET
     Route: 065
  3. MORPHINE [Suspect]
     Active Substance: MORPHINE
     Indication: BACK PAIN
     Dosage: INTRAVENOUS INJECTION OF CRUSHED MORPHINE TABLET
     Route: 065

REACTIONS (4)
  - Wrong technique in product usage process [Unknown]
  - Pulmonary granuloma [Unknown]
  - Pericarditis [Recovered/Resolved]
  - Myocarditis [Unknown]
